FAERS Safety Report 18817713 (Version 3)
Quarter: 2021Q1

REPORT INFORMATION
  Report Type: Spontaneous
  Country: US (occurrence: US)
  Receive Date: 20210201
  Receipt Date: 20210312
  Transmission Date: 20210419
  Serious: Yes (Hospitalization, Other)
  Sender: FDA-Public Use
  Company Number: US-UROGEN PHARMA LTD.-2021-UGN-000006

PATIENT
  Age: 59 Year
  Sex: Female
  Weight: 73.92 kg

DRUGS (12)
  1. JELMYTO [Suspect]
     Active Substance: MITOMYCIN
     Dosage: UNK (INSTILLATION)
     Dates: start: 20201231, end: 20201231
  2. JELMYTO [Suspect]
     Active Substance: MITOMYCIN
     Indication: MALIGNANT NEOPLASM OF RENAL PELVIS
     Dosage: UNK (INSTILLATION)
     Dates: start: 20201217, end: 20201217
  3. DITROPAN [Concomitant]
     Active Substance: OXYBUTYNIN CHLORIDE
     Indication: PRODUCT USED FOR UNKNOWN INDICATION
     Dosage: 5 MG, TID (3 PER DAY) 14 DAYS
     Route: 048
     Dates: start: 20201020
  4. TAMSULOSIN HCL [Concomitant]
     Active Substance: TAMSULOSIN HYDROCHLORIDE
     Indication: PRODUCT USED FOR UNKNOWN INDICATION
     Dosage: 0.4 MG,1 CAP QD
     Route: 048
     Dates: start: 20201020
  5. FEMRING [Concomitant]
     Active Substance: ESTRADIOL ACETATE
     Indication: PRODUCT USED FOR UNKNOWN INDICATION
     Dosage: 0.1 MG/24HR
     Route: 067
     Dates: start: 20200818
  6. JELMYTO [Suspect]
     Active Substance: MITOMYCIN
     Dosage: UNK (INSTILLATION)
     Dates: start: 20210106, end: 20210106
  7. JELMYTO [Suspect]
     Active Substance: MITOMYCIN
     Dosage: UNK (INSTILLATION)
     Dates: start: 20210120, end: 20210120
  8. COREG [Concomitant]
     Active Substance: CARVEDILOL
     Indication: PRODUCT USED FOR UNKNOWN INDICATION
     Dosage: 12.5 MG
     Route: 048
     Dates: start: 20191002
  9. COZAAR [Concomitant]
     Active Substance: LOSARTAN POTASSIUM
     Indication: PRODUCT USED FOR UNKNOWN INDICATION
     Dosage: 100 MG
     Dates: start: 20200930
  10. TRIAMTERENE AND HYDROCHLOROTHIAZIDE [Concomitant]
     Active Substance: HYDROCHLOROTHIAZIDE\TRIAMTERENE
     Indication: PRODUCT USED FOR UNKNOWN INDICATION
     Dosage: 1 TABLET
     Route: 048
     Dates: start: 20191001
  11. PANTOPRAZOLE [Concomitant]
     Active Substance: PANTOPRAZOLE
     Indication: PRODUCT USED FOR UNKNOWN INDICATION
     Dosage: 1 TABLET
     Route: 048
     Dates: start: 20190702
  12. SODIUM BICARBONATE. [Concomitant]
     Active Substance: SODIUM BICARBONATE
     Indication: PRODUCT USED FOR UNKNOWN INDICATION
     Dosage: 650 MG, QD 2 TABS NIGHT BEFORE PROCEDURE,2 TABS AM BEFORE PROCEDURE,2 TABS AFTER LEAVING URINE SAMPL
     Route: 048
     Dates: start: 20201105

REACTIONS (13)
  - Angioedema [Unknown]
  - Wheezing [Unknown]
  - Septic shock [Unknown]
  - Renal pain [Unknown]
  - Renal colic [Unknown]
  - Night sweats [Unknown]
  - Headache [Unknown]
  - Urticaria [Recovered/Resolved]
  - Abdominal pain [Unknown]
  - Hypertension [Unknown]
  - Pharyngeal swelling [Unknown]
  - Adrenal mass [Unknown]
  - Rash morbilliform [Recovered/Resolved]

NARRATIVE: CASE EVENT DATE: 202101
